FAERS Safety Report 13028640 (Version 3)
Quarter: 2017Q1

REPORT INFORMATION
  Report Type: Report from Study
  Country: US (occurrence: US)
  Receive Date: 20161214
  Receipt Date: 20170223
  Transmission Date: 20170428
  Serious: Yes (Hospitalization)
  Sender: FDA-Public Use
  Company Number: US-ACTELION-A-NJ2016-138967

PATIENT
  Age: 59 Year
  Sex: Female

DRUGS (11)
  1. UPTRAVI [Suspect]
     Active Substance: SELEXIPAG
     Indication: PULMONARY ARTERIAL HYPERTENSION
     Dosage: 200 MCG, BID
     Route: 048
     Dates: start: 20160627
  2. UPTRAVI [Suspect]
     Active Substance: SELEXIPAG
     Dosage: 400 MCG, BID
     Route: 048
     Dates: start: 20160627
  3. SILDENAFIL. [Concomitant]
     Active Substance: SILDENAFIL
  4. UPTRAVI [Suspect]
     Active Substance: SELEXIPAG
     Dosage: 1000 MCG, BID
     Route: 048
     Dates: start: 20160627
  5. NORVASC [Concomitant]
     Active Substance: AMLODIPINE BESYLATE
  6. REMODULIN [Suspect]
     Active Substance: TREPROSTINIL
     Indication: PULMONARY ARTERIAL HYPERTENSION
     Dosage: 0.002 MCG/KG
     Route: 065
     Dates: start: 20161201
  7. REMODULIN [Suspect]
     Active Substance: TREPROSTINIL
     Dosage: 0.014 MCG/KG
     Route: 058
  8. OPSUMIT [Concomitant]
     Active Substance: MACITENTAN
     Indication: PULMONARY ARTERIAL HYPERTENSION
     Route: 048
  9. AMLODIPINE [Concomitant]
     Active Substance: AMLODIPINE BESYLATE
  10. REMODULIN [Suspect]
     Active Substance: TREPROSTINIL
     Dosage: 0.030 MCG/KG
     Route: 058
     Dates: start: 20161227
  11. UPTRAVI [Suspect]
     Active Substance: SELEXIPAG
     Dosage: 1200 MCG, BID
     Route: 048
     Dates: start: 20160627

REACTIONS (25)
  - Pulmonary arterial hypertension [Unknown]
  - Diarrhoea [Unknown]
  - Nasal congestion [Unknown]
  - Hyperhidrosis [Unknown]
  - Condition aggravated [Unknown]
  - Decreased appetite [Unknown]
  - Hypotension [Unknown]
  - Paraesthesia [Unknown]
  - Chest pain [Unknown]
  - Arthralgia [Not Recovered/Not Resolved]
  - Dyspnoea [Unknown]
  - Gastrooesophageal reflux disease [Unknown]
  - Palpitations [Recovering/Resolving]
  - Pain in extremity [Unknown]
  - Dry throat [Not Recovered/Not Resolved]
  - Hypoaesthesia [Unknown]
  - Heart rate increased [Unknown]
  - Infusion site erythema [Unknown]
  - Rash [Unknown]
  - Headache [Unknown]
  - Infusion site discomfort [Unknown]
  - Oxygen consumption increased [Unknown]
  - Pain in jaw [Not Recovered/Not Resolved]
  - Back pain [Unknown]
  - Cardiac flutter [Recovering/Resolving]
